FAERS Safety Report 9767023 (Version 1)
Quarter: 2013Q4

REPORT INFORMATION
  Report Type: Spontaneous
  Country: US (occurrence: US)
  Receive Date: 20131217
  Receipt Date: 20131217
  Transmission Date: 20140711
  Serious: Yes (Life-Threatening, Other)
  Sender: FDA-Public Use
  Company Number: US-GLAXOSMITHKLINE-A1037009A

PATIENT
  Age: 69 Year
  Sex: Female

DRUGS (9)
  1. VOTRIENT [Suspect]
     Indication: SARCOMA
     Dosage: 600MG PER DAY
     Route: 048
     Dates: start: 20130307
  2. LORAZEPAM [Concomitant]
  3. CALCIUM SUPPLEMENTS [Concomitant]
  4. MULTI-VITAMIN [Concomitant]
  5. ACYCLOVIR [Concomitant]
  6. METOCLOPRAMIDE [Concomitant]
  7. EVENING PRIMROSE OIL [Concomitant]
  8. IMODIUM [Concomitant]
  9. LISINOPRIL [Concomitant]

REACTIONS (1)
  - Thrombosis [Unknown]
